FAERS Safety Report 4821926-0 (Version None)
Quarter: 2005Q4

REPORT INFORMATION
  Report Type: 
  Country: None (occurrence: None)
  Receive Date: 20051103
  Receipt Date: 20051018
  Transmission Date: 20060501
  Serious: Yes (Hospitalization)
  Sender: FDA-Public Use
  Company Number: EWC051046657

PATIENT
  Age: 74 Year
  Sex: Female

DRUGS (7)
  1. FORSTEO (TERIPARATIDE) [Suspect]
     Indication: OSTEOPOROSIS
     Dosage: 20 UG/1 DAY
     Dates: end: 20050909
  2. ASCAL (ACETYLSALICYLATE CALCIUM) [Concomitant]
  3. ATENOLOL [Concomitant]
  4. VENLAFAXINE HCL [Concomitant]
  5. CALCICHEW (CALCIUM CARBONATE) [Concomitant]
  6. OXAZEPAM [Concomitant]
  7. HYDROCHLOROTHIAZIDE [Concomitant]

REACTIONS (1)
  - GROIN PAIN [None]
